FAERS Safety Report 15084800 (Version 1)
Quarter: 2018Q2

REPORT INFORMATION
  Report Type: Report from Study
  Country: US (occurrence: US)
  Receive Date: 20180628
  Receipt Date: 20180628
  Transmission Date: 20180711
  Serious: Yes (Hospitalization)
  Sender: FDA-Public Use
  Company Number: US-ACTELION-A-NJ2018-172586

PATIENT
  Age: 29 Year
  Sex: Female
  Weight: 67.12 kg

DRUGS (3)
  1. VELETRI [Suspect]
     Active Substance: EPOPROSTENOL
     Dosage: 8 NG/KG, UNK
     Route: 042
  2. ADCIRCA [Concomitant]
     Active Substance: TADALAFIL
  3. VELETRI [Suspect]
     Active Substance: EPOPROSTENOL
     Indication: PULMONARY ARTERIAL HYPERTENSION
     Dosage: 4 NG/KG, PER MIN
     Route: 042
     Dates: start: 20180515

REACTIONS (17)
  - Headache [Unknown]
  - Flushing [Unknown]
  - Malaise [Unknown]
  - Vomiting [Unknown]
  - Catheter site rash [Unknown]
  - Catheter site erythema [Unknown]
  - Catheter site pruritus [Unknown]
  - Gastrooesophageal reflux disease [Unknown]
  - Catheter site pain [Unknown]
  - Drug intolerance [Unknown]
  - Oropharyngeal pain [Unknown]
  - Throat irritation [Unknown]
  - Catheter site urticaria [Unknown]
  - Nausea [Unknown]
  - Therapy non-responder [Unknown]
  - Diarrhoea [Unknown]
  - Feeling hot [Unknown]

NARRATIVE: CASE EVENT DATE: 201805
